FAERS Safety Report 8029778-5 (Version None)
Quarter: 2012Q1

REPORT INFORMATION
  Report Type: 
  Country: None (occurrence: None)
  Receive Date: 20120109
  Receipt Date: 20111230
  Transmission Date: 20120608
  Serious: Yes (Hospitalization)
  Sender: FDA-Public Use
  Company Number: US-BAYER-2011-007551

PATIENT
  Sex: Female
  Weight: 52.154 kg

DRUGS (10)
  1. YASMIN [Suspect]
     Indication: PREMENSTRUAL SYNDROME
     Dosage: UNK
     Dates: start: 20060101
  2. PROCRIT [Concomitant]
     Indication: GASTROINTESTINAL HAEMORRHAGE
  3. IRON [Concomitant]
     Indication: GASTROINTESTINAL HAEMORRHAGE
  4. ASACOL [Concomitant]
     Indication: NAUSEA
  5. VASOPRESSIN AND ANALOGUES [Concomitant]
  6. ASACOL [Concomitant]
     Indication: VOMITING
  7. PLAVIX [Concomitant]
     Indication: CEREBROVASCULAR ACCIDENT PROPHYLAXIS
  8. DROSPIRENONE AND ETHINYL ESTRADIOL [Suspect]
     Indication: PREMENSTRUAL SYNDROME
     Dosage: UNK
     Dates: start: 20060101
  9. HEPARIN [Concomitant]
     Indication: THROMBOSIS
  10. REMERON [Concomitant]
     Indication: DEPRESSION

REACTIONS (6)
  - PANCREATITIS [None]
  - CHOLECYSTITIS CHRONIC [None]
  - PAIN [None]
  - INJURY [None]
  - EMOTIONAL DISTRESS [None]
  - CHOLELITHIASIS [None]
